FAERS Safety Report 9025378 (Version 2)
Quarter: 2013Q1

REPORT INFORMATION
  Report Type: Report from Study
  Country: DK (occurrence: DK)
  Receive Date: 20130122
  Receipt Date: 20130128
  Transmission Date: 20140127
  Serious: Yes (Other)
  Sender: FDA-Public Use
  Company Number: DK-PFIZER INC-2013026756

PATIENT
  Sex: 0

DRUGS (13)
  1. IBUPROFEN [Suspect]
     Indication: PREMEDICATION
     Dosage: 600 MG, UNK
     Route: 048
  2. PROPOFOL [Suspect]
     Indication: ANAESTHESIA
     Dosage: 2-3 MG/KG
  3. PROPOFOL [Suspect]
     Dosage: 3 MG/KG/HR
  4. ONDANSETRON [Suspect]
     Indication: PROPHYLAXIS OF NAUSEA AND VOMITING
     Dosage: 4 MG, UNK
     Route: 042
  5. REMIFENTANIL [Suspect]
     Indication: ANAESTHESIA
     Dosage: 1UG/KG, UNK
  6. REMIFENTANIL [Suspect]
     Dosage: 1UG/KG/MIN
  7. BUPIVACAINE HCL [Suspect]
     Indication: PRODUCT USED FOR UNKNOWN INDICATION
     Dosage: UNK
  8. FENTANYL CITRATE [Suspect]
     Indication: PROCEDURAL PAIN
     Route: 042
  9. FENTANYL CITRATE [Suspect]
     Dosage: RANGE (100- 500 UG/HR)
     Route: 042
  10. PARACETAMOL [Suspect]
     Indication: PREMEDICATION
     Dosage: 1 G, UNK
     Route: 048
  11. CODEINE [Suspect]
     Indication: PREMEDICATION
     Dosage: 50 MG, UNK
     Route: 048
  12. KETOROLAC [Suspect]
     Indication: PRODUCT USED FOR UNKNOWN INDICATION
     Dosage: 30 MG, UNK
     Route: 042
  13. DEXAMETHASONE [Suspect]
     Indication: PRODUCT USED FOR UNKNOWN INDICATION
     Dosage: 8 MG, UNK
     Route: 042

REACTIONS (1)
  - Haemorrhage [Unknown]
